FAERS Safety Report 7389481-1 (Version None)
Quarter: 2011Q2

REPORT INFORMATION
  Report Type: 
  Country: None (occurrence: None)
  Receive Date: 20110401
  Receipt Date: 20110323
  Transmission Date: 20111010
  Serious: Yes (Hospitalization)
  Sender: FDA-Public Use
  Company Number: JP-ASTRAZENECA-2011SE17833

PATIENT
  Sex: Female
  Weight: 3 kg

DRUGS (14)
  1. ARTIST [Suspect]
     Route: 048
     Dates: start: 20080201, end: 20080507
  2. LUPRAC [Concomitant]
     Indication: CARDIAC FAILURE
     Route: 048
     Dates: start: 20080123, end: 20080507
  3. BLOPRESS [Suspect]
     Indication: CARDIAC FAILURE
     Route: 048
     Dates: start: 20080121, end: 20080124
  4. BLOPRESS [Suspect]
     Route: 048
     Dates: start: 20080125, end: 20080218
  5. PHENOBAL [Concomitant]
     Indication: SEDATIVE THERAPY
     Route: 048
     Dates: start: 20070914, end: 20080507
  6. ALDACTONE [Concomitant]
     Indication: CARDIAC FAILURE
     Route: 048
     Dates: start: 20070918, end: 20080612
  7. THYRADIN-S [Concomitant]
     Indication: HYPOTHYROIDISM
     Route: 048
     Dates: start: 20080212, end: 20080612
  8. LASIX [Concomitant]
     Indication: CARDIAC FAILURE
     Route: 048
     Dates: start: 20070918, end: 20080612
  9. ACETYLSALICYLIC ACID [Concomitant]
     Indication: THROMBOSIS PROPHYLAXIS
     Route: 048
     Dates: start: 20071224, end: 20080507
  10. WARFARIN [Concomitant]
     Indication: THROMBOSIS PROPHYLAXIS
     Route: 048
     Dates: start: 20071122, end: 20080507
  11. ARTIST [Suspect]
     Indication: CARDIAC FAILURE
     Route: 048
     Dates: start: 20080101, end: 20080131
  12. ANGINAL [Concomitant]
     Indication: THROMBOSIS PROPHYLAXIS
     Route: 048
     Dates: start: 20080121, end: 20080507
  13. BLOPRESS [Suspect]
     Route: 048
     Dates: start: 20080219, end: 20080507
  14. TANATRIL [Concomitant]
     Indication: CARDIAC FAILURE
     Route: 048
     Dates: start: 20080304, end: 20080507

REACTIONS (3)
  - OEDEMA [None]
  - URINE OUTPUT DECREASED [None]
  - BLOOD PRESSURE DECREASED [None]
